FAERS Safety Report 9661320 (Version 3)
Quarter: 2013Q4

REPORT INFORMATION
  Report Type: Report from Study
  Country: US (occurrence: US)
  Receive Date: 20131031
  Receipt Date: 20131113
  Transmission Date: 20140711
  Serious: Yes (Death, Hospitalization)
  Sender: FDA-Public Use
  Company Number: US-ACTELION-A-NJ2013-89309

PATIENT
  Age: 1 Year
  Sex: Male

DRUGS (11)
  1. TRACLEER [Suspect]
     Indication: PULMONARY ARTERIAL HYPERTENSION
     Dosage: 15.625 MG, OD
     Route: 048
     Dates: start: 20130925, end: 20131015
  2. TRACLEER [Suspect]
     Dosage: 15.625 MG, UNK
     Route: 048
     Dates: end: 20130903
  3. SILDENAFIL [Concomitant]
     Dosage: UNK
  4. POLYVISOL [Concomitant]
  5. BUDESONIDE [Concomitant]
  6. DIURIL [Concomitant]
  7. LASIX [Concomitant]
  8. ALDACTONE [Concomitant]
  9. DIGOXIN [Concomitant]
  10. PREVACID [Concomitant]
  11. KEPPRA [Concomitant]

REACTIONS (8)
  - Pneumonia [Fatal]
  - Septic shock [Fatal]
  - Pyrexia [Unknown]
  - Cough [Unknown]
  - Dyspnoea [Unknown]
  - Aspartate aminotransferase increased [Recovered/Resolved]
  - Alanine aminotransferase increased [Recovered/Resolved]
  - Liver function test abnormal [Recovered/Resolved]
